FAERS Safety Report 11117736 (Version 4)
Quarter: 2015Q3

REPORT INFORMATION
  Report Type: Report from Study
  Country: US (occurrence: US)
  Receive Date: 20150518
  Receipt Date: 20150902
  Transmission Date: 20151125
  Serious: No
  Sender: FDA-Public Use
  Company Number: US-ALEXION-A201501669

PATIENT

DRUGS (1)
  1. SOLIRIS [Suspect]
     Active Substance: ECULIZUMAB
     Indication: HAEMOLYTIC URAEMIC SYNDROME
     Dosage: UNK
     Route: 042

REACTIONS (8)
  - Malaise [Unknown]
  - Nervousness [Unknown]
  - Condition aggravated [Recovered/Resolved]
  - Constipation [Unknown]
  - Gene mutation [Unknown]
  - Abdominal pain upper [Recovered/Resolved]
  - Blood lactate dehydrogenase increased [Unknown]
  - Abdominal discomfort [Unknown]

NARRATIVE: CASE EVENT DATE: 20150504
